FAERS Safety Report 13511739 (Version 1)
Quarter: 2017Q2

REPORT INFORMATION
  Report Type: Spontaneous
  Country: US (occurrence: US)
  Receive Date: 20170503
  Receipt Date: 20170503
  Transmission Date: 20170830
  Serious: Yes (Hospitalization, Other)
  Sender: FDA-Public Use
  Company Number: None

PATIENT
  Age: 16 Year
  Sex: Female
  Weight: 60 kg

DRUGS (1)
  1. BACTRIM [Suspect]
     Active Substance: SULFAMETHOXAZOLE\TRIMETHOPRIM
     Indication: ACNE
     Dates: start: 20170406, end: 20170425

REACTIONS (3)
  - Drug reaction with eosinophilia and systemic symptoms [None]
  - Cholestasis [None]
  - Hepatotoxicity [None]

NARRATIVE: CASE EVENT DATE: 20170501
